FAERS Safety Report 13638596 (Version 2)
Quarter: 2017Q3

REPORT INFORMATION
  Report Type: Spontaneous
  Country: FR (occurrence: FR)
  Receive Date: 20170609
  Receipt Date: 20170908
  Transmission Date: 20171127
  Serious: Yes (Other)
  Sender: FDA-Public Use
  Company Number: FR-BAYER-2017-111141

PATIENT
  Age: 34 Year
  Sex: Female

DRUGS (1)
  1. MIRENA [Suspect]
     Active Substance: LEVONORGESTREL
     Indication: CONTRACEPTION
     Dosage: 20 MCG/24HR, CONT
     Route: 015
     Dates: start: 20170418, end: 20170515

REACTIONS (15)
  - Loss of libido [Recovered/Resolved]
  - Irritability [Not Recovered/Not Resolved]
  - Depression [Not Recovered/Not Resolved]
  - Amnesia [Recovered/Resolved]
  - Crying [Not Recovered/Not Resolved]
  - Anxiety [Not Recovered/Not Resolved]
  - Disturbance in attention [Recovered/Resolved]
  - Nausea [Not Recovered/Not Resolved]
  - Mood altered [Not Recovered/Not Resolved]
  - Pain [Recovered/Resolved]
  - Weight increased [Recovered/Resolved]
  - Urine odour abnormal [Recovered/Resolved]
  - Acne [Recovered/Resolved]
  - Panic attack [Not Recovered/Not Resolved]
  - Fatigue [Recovered/Resolved]

NARRATIVE: CASE EVENT DATE: 20170420
